FAERS Safety Report 4534509-7 (Version None)
Quarter: 2004Q4

REPORT INFORMATION
  Report Type: 
  Country: None (occurrence: None)
  Receive Date: 20041221
  Receipt Date: 20041221
  Transmission Date: 20050328
  Serious: Yes (Life-Threatening, Hospitalization)
  Sender: FDA-Public Use
  Company Number: None

PATIENT
  Age: 43 Year
  Sex: Male
  Weight: 62.6 kg

DRUGS (6)
  1. HYDROMORPHONE [Suspect]
     Indication: PAIN
     Dosage: 2 MG PO Q 6 HRS
     Route: 048
     Dates: start: 20040914, end: 20040921
  2. HYDROXYZINE HCL [Concomitant]
  3. PREDNISONE [Concomitant]
  4. QUININE SULFATE [Concomitant]
  5. CARBIDOPA 10/LEVODOPA [Concomitant]
  6. METHOCARBAMOL [Concomitant]

REACTIONS (1)
  - PRURITUS [None]
